FAERS Safety Report 8419437-9 (Version None)
Quarter: 2012Q2

REPORT INFORMATION
  Report Type: 
  Country: None (occurrence: None)
  Receive Date: 20120607
  Receipt Date: 20120528
  Transmission Date: 20120825
  Serious: Yes (Other)
  Sender: FDA-Public Use
  Company Number: JP-GLAXOSMITHKLINE-B0798321A

PATIENT
  Age: 71 Year
  Sex: Male

DRUGS (5)
  1. OMERAN [Concomitant]
     Dosage: 1IUAX PER DAY
     Route: 048
  2. DUTASTERIDE [Suspect]
     Indication: BENIGN PROSTATIC HYPERPLASIA
     Dosage: .5MG PER DAY
     Route: 048
     Dates: start: 20120331
  3. URSO 250 [Concomitant]
     Dosage: 9IUAX PER DAY
     Route: 048
  4. LEVOFLOXACIN [Suspect]
     Indication: PRODUCT USED FOR UNKNOWN INDICATION
     Route: 065
  5. URIEF [Suspect]
     Indication: PRODUCT USED FOR UNKNOWN INDICATION
     Dosage: 2IUAX PER DAY
     Route: 048
     Dates: start: 20120412

REACTIONS (3)
  - GAMMA-GLUTAMYLTRANSFERASE INCREASED [None]
  - ALANINE AMINOTRANSFERASE INCREASED [None]
  - ASPARTATE AMINOTRANSFERASE INCREASED [None]
